FAERS Safety Report 25842682 (Version 1)
Quarter: 2025Q3

REPORT INFORMATION
  Report Type: Spontaneous
  Country: US (occurrence: US)
  Receive Date: 20250924
  Receipt Date: 20250924
  Transmission Date: 20251020
  Serious: Yes (Other)
  Sender: DR REDDYS
  Company Number: None

PATIENT
  Age: 49 Year
  Sex: Female

DRUGS (2)
  1. TRIAMCINOLONE [Suspect]
     Active Substance: TRIAMCINOLONE
     Indication: Dermatitis
     Route: 014
  2. COBICISTAT [Suspect]
     Active Substance: COBICISTAT
     Indication: HIV infection

REACTIONS (3)
  - Cushing^s syndrome [Unknown]
  - Adrenal insufficiency [Unknown]
  - Drug interaction [Unknown]
